FAERS Safety Report 4915094-4 (Version None)
Quarter: 2006Q1

REPORT INFORMATION
  Report Type: 
  Country: None (occurrence: None)
  Receive Date: 20060215
  Receipt Date: 20060215
  Transmission Date: 20060701
  Serious: Yes (Hospitalization)
  Sender: FDA-Public Use
  Company Number: None

PATIENT
  Age: 53 Year
  Sex: Male
  Weight: 103 kg

DRUGS (2)
  1. ACYCLOVIR SODIUM [Suspect]
     Indication: HERPES SIMPLEX
     Dosage: 1000MG Q8H IV BOLUS
     Route: 040
     Dates: start: 20051008, end: 20051012
  2. ACYCLOVIR SODIUM [Suspect]
     Indication: VOCAL CORD DISORDER
     Dosage: 1000MG Q8H IV BOLUS
     Route: 040
     Dates: start: 20051008, end: 20051012

REACTIONS (3)
  - POSTOPERATIVE FEVER [None]
  - RENAL FAILURE ACUTE [None]
  - THYROID GLAND CANCER [None]
